FAERS Safety Report 4695525-8 (Version None)
Quarter: 2005Q2

REPORT INFORMATION
  Report Type: 
  Country: None (occurrence: None)
  Receive Date: 20050608
  Receipt Date: 20050413
  Transmission Date: 20051028
  Serious: Yes (Other)
  Sender: FDA-Public Use
  Company Number: A03200501064

PATIENT

DRUGS (1)
  1. ELOXATIN [Suspect]
     Indication: NEOPLASM MALIGNANT
     Dosage: INTRAVENOUS NOS
     Route: 042
     Dates: start: 20050101, end: 20050101

REACTIONS (3)
  - ANGIONEUROTIC OEDEMA [None]
  - HYPERSENSITIVITY [None]
  - SWELLING FACE [None]
